FAERS Safety Report 7988657-X (Version None)
Quarter: 2011Q4

REPORT INFORMATION
  Report Type: 
  Country: None (occurrence: None)
  Receive Date: 20111218
  Receipt Date: 20111205
  Transmission Date: 20120403
  Serious: Yes (Other)
  Sender: FDA-Public Use
  Company Number: US-ELI_LILLY_AND_COMPANY-US201112002213

PATIENT
  Age: 59 Year
  Sex: Female

DRUGS (2)
  1. CYMBALTA [Suspect]
     Indication: DEPRESSION
     Dosage: 60 MG, QD
     Dates: end: 20111129
  2. ACETAMINOPHEN [Concomitant]

REACTIONS (4)
  - BLINDNESS [None]
  - HEADACHE [None]
  - DIZZINESS [None]
  - DRUG WITHDRAWAL SYNDROME [None]
